FAERS Safety Report 10016854 (Version 2)
Quarter: 2014Q3

REPORT INFORMATION
  Report Type: Spontaneous
  Country: IT (occurrence: IT)
  Receive Date: 20140318
  Receipt Date: 20140715
  Transmission Date: 20150326
  Serious: Yes (Other)
  Sender: FDA-Public Use
  Company Number: IT-PFIZER INC-2014075842

PATIENT
  Age: 58 Year
  Sex: Male
  Weight: 64 kg

DRUGS (8)
  1. ADRIBLASTINA [Suspect]
     Active Substance: DOXORUBICIN HYDROCHLORIDE
     Indication: B-CELL LYMPHOMA
     Dosage: 90 MG, CYCLIC
     Route: 042
     Dates: start: 20131112
  2. ALLOPURINOL. [Concomitant]
     Active Substance: ALLOPURINOL
     Indication: HYPERURICAEMIA
     Dosage: 300 MG, UNK
     Route: 048
  3. VINCRISTINA PFIZER ITALIA [Suspect]
     Active Substance: VINCRISTINE
     Indication: B-CELL LYMPHOMA
     Dosage: 2 MG, CYCLIC
     Route: 042
     Dates: start: 20131112
  4. MESALAZINE [Concomitant]
     Active Substance: MESALAMINE
     Indication: COLITIS ULCERATIVE
     Dosage: 1200 MG, UNK
     Route: 048
  5. ENDOXAN-BAXTER [Suspect]
     Active Substance: CYCLOPHOSPHAMIDE
     Indication: B-CELL LYMPHOMA
     Dosage: 1300 MG, CYCLIC
     Route: 042
     Dates: start: 20131112
  6. DELTACORTENE [Suspect]
     Active Substance: PREDNISONE
     Indication: B-CELL LYMPHOMA
     Dosage: 175 MG, CYCLIC
     Route: 048
     Dates: start: 20131112
  7. PANTOPRAZOLE SODIUM. [Concomitant]
     Active Substance: PANTOPRAZOLE SODIUM
     Indication: LYMPHOMA
     Dosage: 40 MG, UNK
     Dates: start: 20131112, end: 20140312
  8. MABTHERA [Suspect]
     Active Substance: RITUXIMAB
     Indication: B-CELL LYMPHOMA
     Dosage: 650 MG, CYCLIC
     Route: 042
     Dates: start: 20131112

REACTIONS (1)
  - Ophthalmic herpes simplex [Recovered/Resolved]

NARRATIVE: CASE EVENT DATE: 20140303
